FAERS Safety Report 11791974 (Version 1)
Quarter: 2015Q4

REPORT INFORMATION
  Report Type: Spontaneous
  Country: CA (occurrence: CA)
  Receive Date: 20151201
  Receipt Date: 20151201
  Transmission Date: 20160305
  Serious: Yes (Other)
  Sender: FDA-Public Use
  Company Number: CA-TEVA-612958ACC

PATIENT
  Age: 63 Year
  Sex: Female

DRUGS (4)
  1. ERYTHROMYCIN. [Suspect]
     Active Substance: ERYTHROMYCIN
     Indication: PRODUCT USED FOR UNKNOWN INDICATION
     Route: 048
  2. SYNTHROID [Concomitant]
     Active Substance: LEVOTHYROXINE SODIUM
  3. ASA [Concomitant]
     Active Substance: ASPIRIN
  4. THYROXINE [Concomitant]
     Active Substance: LEVOTHYROXINE

REACTIONS (1)
  - Choking sensation [Recovered/Resolved]
